FAERS Safety Report 14540018 (Version 1)
Quarter: 2018Q1

REPORT INFORMATION
  Report Type: Spontaneous
  Country: US (occurrence: US)
  Receive Date: 20180216
  Receipt Date: 20180216
  Transmission Date: 20180509
  Serious: Yes (Other)
  Sender: FDA-Public Use
  Company Number: PHEH2018US004731

PATIENT
  Sex: Female
  Weight: 64.41 kg

DRUGS (1)
  1. OXCARBAZEPINE. [Suspect]
     Active Substance: OXCARBAZEPINE
     Indication: TRIGEMINAL NEURALGIA
     Dosage: 1 DF, QD
     Route: 065

REACTIONS (3)
  - Gait disturbance [Unknown]
  - Hypersensitivity [Unknown]
  - Incorrect dose administered [Unknown]
